FAERS Safety Report 9632240 (Version 2)
Quarter: 2013Q4

REPORT INFORMATION
  Report Type: Spontaneous
  Country: DE (occurrence: DE)
  Receive Date: 20131018
  Receipt Date: 20131107
  Transmission Date: 20140711
  Serious: Yes (Disabling, Other)
  Sender: FDA-Public Use
  Company Number: DE-JNJFOC-20131009839

PATIENT
  Age: 75 Year
  Sex: Male
  Weight: 90 kg

DRUGS (3)
  1. XARELTO [Suspect]
     Indication: CEREBROVASCULAR ACCIDENT PROPHYLAXIS
     Route: 048
     Dates: start: 20130625, end: 20130901
  2. XARELTO [Suspect]
     Indication: ATRIAL FIBRILLATION
     Route: 048
     Dates: start: 20130625, end: 20130901
  3. MARCUMAR [Concomitant]
     Route: 065

REACTIONS (1)
  - Deep vein thrombosis [Unknown]
